FAERS Safety Report 9402758 (Version 1)
Quarter: 2013Q3

REPORT INFORMATION
  Report Type: Spontaneous
  Country: FR (occurrence: FR)
  Receive Date: 20130716
  Receipt Date: 20130716
  Transmission Date: 20140515
  Serious: Yes (Hospitalization, Other)
  Sender: FDA-Public Use
  Company Number: FR-PFIZER INC-2013204491

PATIENT
  Age: 71 Year
  Sex: Male

DRUGS (10)
  1. RAPAMUNE [Suspect]
     Indication: LUNG ADENOCARCINOMA
     Dosage: 1 MG, UNK
     Route: 048
     Dates: start: 20130218
  2. CORTANCYL [Concomitant]
     Dosage: UNK
     Route: 048
  3. APROVEL [Concomitant]
     Dosage: UNK
     Route: 048
  4. INEXIUM [Concomitant]
     Dosage: UNK
     Route: 048
  5. LASILIX [Concomitant]
     Dosage: UNK
     Route: 048
  6. BACTRIM [Concomitant]
     Dosage: UNK
     Route: 048
  7. ROVALCYTE [Concomitant]
     Dosage: 450 MG, UNK
     Route: 048
  8. KARDEGIC [Concomitant]
     Dosage: UNK
     Route: 048
  9. IMODIUM [Concomitant]
     Dosage: UNK
     Route: 048
  10. ARANESP [Concomitant]
     Dosage: UNK
     Route: 058

REACTIONS (7)
  - Pulmonary embolism [Recovered/Resolved]
  - Embolism venous [Unknown]
  - Emphysema [Unknown]
  - Mycobacterium tuberculosis complex test positive [Unknown]
  - Malaise [Unknown]
  - Chest pain [Unknown]
  - Diarrhoea [Unknown]
